FAERS Safety Report 9270740 (Version 2)
Quarter: 2013Q2

REPORT INFORMATION
  Report Type: Spontaneous
  Country: GB (occurrence: GB)
  Receive Date: 20130506
  Receipt Date: 20130529
  Transmission Date: 20140414
  Serious: Yes (Other)
  Sender: FDA-Public Use
  Company Number: GB-009507513-1303GBR003708

PATIENT
  Age: 39 Year
  Sex: Female
  Weight: 66 kg

DRUGS (10)
  1. NEXPLANON [Suspect]
     Indication: CONTRACEPTION
     Dosage: 1 DF, UNK
     Route: 058
     Dates: start: 20110216, end: 20130221
  2. AMITRIPTYLINE HYDROCHLORIDE [Concomitant]
     Route: 048
  3. MARVELON [Concomitant]
  4. ADAPALENE [Concomitant]
  5. DOXYCYCLINE [Concomitant]
  6. MORPHINE [Concomitant]
     Route: 048
  7. ACETAMINOPHEN [Concomitant]
  8. PREGABALIN [Concomitant]
  9. RIZATRIPTAN SULFATE [Concomitant]
  10. TRAMADOL HYDROCHLORIDE [Concomitant]

REACTIONS (2)
  - Acne [Recovering/Resolving]
  - Device breakage [Unknown]
